FAERS Safety Report 15543310 (Version 1)
Quarter: 2018Q4

REPORT INFORMATION
  Report Type: Spontaneous
  Country: CN (occurrence: CN)
  Receive Date: 20181023
  Receipt Date: 20181023
  Transmission Date: 20190205
  Serious: Yes (Hospitalization)
  Sender: FDA-Public Use
  Company Number: PHHY2018CN133971

PATIENT
  Age: 12 Year
  Sex: Female

DRUGS (2)
  1. VALPROATE SODIUM. [Suspect]
     Active Substance: VALPROATE SODIUM
     Indication: EPILEPSY
     Dosage: UNK
     Route: 048
  2. OXCARBAZEPINE. [Suspect]
     Active Substance: OXCARBAZEPINE
     Indication: EPILEPSY
     Dosage: UNK
     Route: 048

REACTIONS (12)
  - Loss of consciousness [Unknown]
  - Pulmonary cavitation [Unknown]
  - Status epilepticus [Recovering/Resolving]
  - Pharyngitis [Unknown]
  - Agranulocytosis [Unknown]
  - Pyrexia [Unknown]
  - Lung infection [Unknown]
  - Skin lesion [Unknown]
  - Pulmonary necrosis [Unknown]
  - Pneumonia [Unknown]
  - Cough [Recovering/Resolving]
  - Dyspnoea [Unknown]
